FAERS Safety Report 14227742 (Version 1)
Quarter: 2017Q4

REPORT INFORMATION
  Report Type: Spontaneous
  Country: FR (occurrence: FR)
  Receive Date: 20171127
  Receipt Date: 20171127
  Transmission Date: 20180321
  Serious: Yes (Death)
  Sender: FDA-Public Use
  Company Number: FR-LANNETT COMPANY, INC.-FR-2017LAN001212

PATIENT
  Age: 34 Year
  Sex: Male

DRUGS (1)
  1. BACLOFEN (20MG) [Suspect]
     Active Substance: BACLOFEN
     Indication: ALCOHOL USE DISORDER
     Dosage: UNK
     Route: 065

REACTIONS (1)
  - Toxicity to various agents [Fatal]

NARRATIVE: CASE EVENT DATE: 2013
